FAERS Safety Report 13469425 (Version 2)
Quarter: 2017Q2

REPORT INFORMATION
  Report Type: Spontaneous
  Country: US (occurrence: US)
  Receive Date: 20170421
  Receipt Date: 20170425
  Transmission Date: 20170830
  Serious: Yes (Hospitalization)
  Sender: FDA-Public Use
  Company Number: US-ALLERGAN-1715241US

PATIENT
  Age: 56 Year
  Sex: Male

DRUGS (12)
  1. MORPHINE SULFATE UNK [Suspect]
     Active Substance: MORPHINE SULFATE
     Dosage: 60 MG, Q8HR
  2. FENTANYL. [Suspect]
     Active Substance: FENTANYL
     Dosage: 75G/HR/72 HOURS, ON DAY 20
     Route: 062
  3. KETAMINE [Concomitant]
     Active Substance: KETAMINE
     Indication: ANALGESIC THERAPY
     Dosage: 20 MG, Q1HR
     Route: 042
  4. HYDROMORPHONE [Suspect]
     Active Substance: HYDROMORPHONE
     Indication: ANALGESIC THERAPY
     Dosage: 30 MG FIRST 24 HOURS ON POST OPERATIVE DAY 1
     Route: 042
  5. FENTANYL. [Suspect]
     Active Substance: FENTANYL
     Indication: ANALGESIC THERAPY
     Dosage: 500 ?G, POST OPERATIVE DAY 1
     Route: 042
  6. MORPHINE SULFATE UNK [Suspect]
     Active Substance: MORPHINE SULFATE
     Indication: ANALGESIC THERAPY
     Dosage: 30 MG FIRST 24 HOURS ON POST OPERATIVE DAY 1
  7. HYDROMORPHONE [Suspect]
     Active Substance: HYDROMORPHONE
     Dosage: 12 MG FIRST 24 HOURS ON POST OPERATIVE DAY 1
     Route: 048
  8. FENTANYL. [Suspect]
     Active Substance: FENTANYL
     Dosage: 12?G/HR/72 HOURS, POST OPERATIVE DAY 5
     Route: 062
  9. FENTANYL. [Suspect]
     Active Substance: FENTANYL
     Dosage: 75?G/HR, POST OPERATIVE DAY 5
     Route: 062
  10. KETAMINE [Concomitant]
     Active Substance: KETAMINE
     Dosage: 10 MG, SINGLE
     Route: 042
  11. FENTANYL. [Suspect]
     Active Substance: FENTANYL
     Dosage: 12?G/HOUR, POST OPERATIVE DAY 1
     Route: 062
  12. NORCO [Suspect]
     Active Substance: ACETAMINOPHEN\HYDROCODONE BITARTRATE
     Indication: ANALGESIC THERAPY
     Dosage: 6-7/DAY
     Route: 048

REACTIONS (1)
  - Hyperaesthesia [Recovered/Resolved]
